FAERS Safety Report 25539715 (Version 1)
Quarter: 2025Q3

REPORT INFORMATION
  Report Type: Spontaneous
  Country: US (occurrence: None)
  Receive Date: 20250710
  Receipt Date: 20250710
  Transmission Date: 20251021
  Serious: No
  Sender: FDA-CTU
  Company Number: None

PATIENT

DRUGS (1)
  1. ICATIBANT [Suspect]
     Active Substance: ICATIBANT ACETATE

REACTIONS (7)
  - Lip swelling [None]
  - Dysphonia [None]
  - Headache [None]
  - Inner ear disorder [None]
  - Swelling [None]
  - Peripheral swelling [None]
  - Peripheral swelling [None]
